FAERS Safety Report 26143525 (Version 1)
Quarter: 2025Q4

REPORT INFORMATION
  Report Type: Spontaneous
  Country: EU (occurrence: EU)
  Receive Date: 20251211
  Receipt Date: 20251211
  Transmission Date: 20260117
  Serious: Yes (Other)
  Sender: GILEAD
  Company Number: None

PATIENT
  Age: 46 Year
  Sex: Male
  Weight: 67 kg

DRUGS (2)
  1. BIKTARVY [Suspect]
     Active Substance: BICTEGRAVIR SODIUM\EMTRICITABINE\TENOFOVIR ALAFENAMIDE FUMARATE
     Indication: HIV infection
     Dosage: 50 MG/200 MG/25 MG
     Route: 048
     Dates: start: 202304, end: 202503
  2. DELSTRIGO [Suspect]
     Active Substance: DORAVIRINE\LAMIVUDINE\TENOFOVIR DISOPROXIL FUMARATE
     Indication: HIV infection
     Dosage: 100 MG/300 MG/245 MG
     Route: 048
     Dates: start: 202503

REACTIONS (1)
  - Polycythaemia [Recovered/Resolved]

NARRATIVE: CASE EVENT DATE: 20250516
